FAERS Safety Report 8993418 (Version 1)
Quarter: 2013Q1

REPORT INFORMATION
  Report Type: Spontaneous
  Country: US (occurrence: US)
  Receive Date: 20130102
  Receipt Date: 20130102
  Transmission Date: 20140127
  Serious: No
  Sender: FDA-Public Use
  Company Number: US-PFIZER INC-2012249569

PATIENT
  Age: 46 Year
  Sex: Female

DRUGS (3)
  1. DEPO-PROVERA [Suspect]
     Indication: CONTRACEPTION
     Dosage: 150 MG, EVERY 3 MONTHS
     Dates: start: 20110831
  2. DEPO-PROVERA [Suspect]
     Dosage: 150 MG, UNK
     Route: 058
     Dates: start: 20121008
  3. DEPO-PROVERA [Suspect]
     Dosage: 150 MG/ML, EVERY 3 MONTHS
     Route: 058
     Dates: start: 20121009

REACTIONS (4)
  - Incorrect route of drug administration [Unknown]
  - Injection site bruising [Recovered/Resolved]
  - Injection site erythema [Recovered/Resolved]
  - Injection site inflammation [Recovered/Resolved]
